FAERS Safety Report 16916657 (Version 1)
Quarter: 2019Q4

REPORT INFORMATION
  Report Type: Report from Study
  Country: BR (occurrence: BR)
  Receive Date: 20191014
  Receipt Date: 20191014
  Transmission Date: 20200122
  Serious: Yes (Death, Other)
  Sender: FDA-Public Use
  Company Number: BR-TAKEDA-2019TUS056316

PATIENT
  Age: 72 Year
  Sex: Female

DRUGS (1)
  1. VEDOLIZUMAB [Suspect]
     Active Substance: VEDOLIZUMAB
     Indication: CROHN^S DISEASE
     Dosage: 300 MILLIGRAM
     Route: 042
     Dates: start: 20190226, end: 20190809

REACTIONS (3)
  - Cardio-respiratory arrest [Fatal]
  - Diarrhoea [Fatal]
  - Crohn^s disease [Fatal]

NARRATIVE: CASE EVENT DATE: 20190927
